FAERS Safety Report 8391277-9 (Version None)
Quarter: 2012Q2

REPORT INFORMATION
  Report Type: 
  Country: None (occurrence: None)
  Receive Date: 20120529
  Receipt Date: 20110712
  Transmission Date: 20120825
  Serious: No
  Sender: FDA-Public Use
  Company Number: US-ABBOTT-11P-163-0838833-00

PATIENT
  Sex: Male
  Weight: 67.646 kg

DRUGS (6)
  1. HYDROCORTISONE [Concomitant]
     Indication: PAIN
  2. LOMOTIL [Concomitant]
     Indication: DIARRHOEA
  3. TESTOSTERONE [Concomitant]
     Indication: BLOOD TESTOSTERONE DECREASED
  4. HYDROCORTISONE [Concomitant]
     Indication: BACK INJURY
  5. ZEMPLAR [Suspect]
     Indication: VITAMIN D DEFICIENCY
  6. LOMOTIL [Concomitant]
     Indication: CROHN'S DISEASE

REACTIONS (6)
  - MYALGIA [None]
  - THIRST [None]
  - FATIGUE [None]
  - FEELING ABNORMAL [None]
  - ASTHENIA [None]
  - ILL-DEFINED DISORDER [None]
